FAERS Safety Report 6747531-7 (Version None)
Quarter: 2010Q2

REPORT INFORMATION
  Report Type: 
  Country: None (occurrence: None)
  Receive Date: 20100528
  Receipt Date: 20100504
  Transmission Date: 20101027
  Serious: Yes (Other)
  Sender: FDA-Public Use
  Company Number: TR-JNJFOC-20100501356

PATIENT
  Age: 42 Year
  Sex: Female

DRUGS (4)
  1. KETOCONAZOLE [Suspect]
     Indication: ACANTHAMOEBA KERATITIS
     Route: 048
  2. CHLORHEXIDINE [Suspect]
     Indication: ACANTHAMOEBA KERATITIS
     Route: 061
  3. POLYMYXIN-B-SULFATE [Suspect]
     Indication: ACANTHAMOEBA KERATITIS
     Route: 065
  4. PROPAMIDINE ISETIONATE [Suspect]
     Indication: ACANTHAMOEBA KERATITIS
     Route: 061

REACTIONS (1)
  - KERATITIS [None]
